FAERS Safety Report 21568660 (Version 1)
Quarter: 2022Q4

REPORT INFORMATION
  Report Type: Spontaneous
  Country: US (occurrence: US)
  Receive Date: 20221108
  Receipt Date: 20221108
  Transmission Date: 20230112
  Serious: Yes (Other)
  Sender: FDA-Public Use
  Company Number: US-TEVA-2022-US-2824197

PATIENT
  Age: 72 Year
  Sex: Female

DRUGS (2)
  1. PROAIR HFA [Suspect]
     Active Substance: ALBUTEROL SULFATE
     Indication: Dyspnoea
     Dosage: 1080 MICROGRAM DAILY; FORM STRENGTH: 90 MCG, START DATE 5 YEARS AGO
  2. PROAIR HFA [Suspect]
     Active Substance: ALBUTEROL SULFATE
     Indication: Chronic obstructive pulmonary disease

REACTIONS (8)
  - Ulcer haemorrhage [Unknown]
  - Cerebrovascular accident [Unknown]
  - Pneumonia [Unknown]
  - Back injury [Not Recovered/Not Resolved]
  - Memory impairment [Not Recovered/Not Resolved]
  - Hypoacusis [Not Recovered/Not Resolved]
  - COVID-19 [Unknown]
  - Therapeutic response unexpected [Unknown]
